FAERS Safety Report 18409017 (Version 1)
Quarter: 2020Q4

REPORT INFORMATION
  Report Type: Spontaneous
  Country: NO (occurrence: NO)
  Receive Date: 20201021
  Receipt Date: 20201021
  Transmission Date: 20210114
  Serious: Yes (Hospitalization)
  Sender: FDA-Public Use
  Company Number: NO-MERZ PHARMACEUTICALS GMBH-20-03727

PATIENT
  Age: 80 Year
  Sex: Male

DRUGS (8)
  1. SINEMET [Concomitant]
     Active Substance: CARBIDOPA\LEVODOPA
     Indication: PARKINSONISM
     Dosage: 400 MG (1 TABLET 4 TIMES A DAY)
     Route: 048
     Dates: start: 20200707
  2. LAMISIL [Concomitant]
     Active Substance: TERBINAFINE HYDROCHLORIDE
     Indication: DERMATOPHYTOSIS OF NAIL
     Dosage: 250 MG
     Route: 048
     Dates: start: 20200612
  3. MUCOMYST [Concomitant]
     Active Substance: ACETYLCYSTEINE
     Indication: INCREASED VISCOSITY OF BRONCHIAL SECRETION
     Dosage: 600 MG
     Route: 048
     Dates: start: 20200811, end: 20200828
  4. LAXOBERAL [Concomitant]
     Active Substance: SODIUM PICOSULFATE
     Indication: CONSTIPATION
     Dosage: 10 DROPS (MONDAY, WEDNESDAY, FRIDAY NIGHT)
     Route: 048
     Dates: start: 20200203, end: 20200828
  5. XEOMIN [Suspect]
     Active Substance: INCOBOTULINUMTOXINA
     Indication: MUSCLE SPASTICITY
     Route: 030
     Dates: start: 20200703, end: 20200703
  6. KLYX [Concomitant]
     Active Substance: DOCUSATE SODIUM
     Indication: CONSTIPATION
     Dosage: 1 DOSE EVERY TUESDAY AND SUNDAY?250 MG/ML SORBITOL + 1 MG/ML OKUSATNATRIUM
     Route: 054
     Dates: start: 20200224, end: 20200828
  7. PARACETAMOL [Concomitant]
     Active Substance: ACETAMINOPHEN
     Indication: PAIN
     Dosage: 1 GRAM AT 1 P.M.
     Route: 048
     Dates: start: 20200710, end: 20200821
  8. NYCOPLUS VITAMIN D3 [Concomitant]
     Indication: VITAMIN D DEFICIENCY
     Dosage: 800 UNITS (1 TABLET A DAY)
     Dates: start: 20190605

REACTIONS (2)
  - Dysphagia [Not Recovered/Not Resolved]
  - Pneumonia [Recovering/Resolving]

NARRATIVE: CASE EVENT DATE: 202008
